FAERS Safety Report 24258190 (Version 1)
Quarter: 2024Q3

REPORT INFORMATION
  Report Type: Spontaneous
  Country: US (occurrence: US)
  Receive Date: 20240828
  Receipt Date: 20240828
  Transmission Date: 20241016
  Serious: Yes (Hospitalization, Other)
  Sender: BRISTOL MYERS SQUIBB
  Company Number: US-BRISTOL-MYERS SQUIBB COMPANY-2024-134556

PATIENT
  Age: 69 Year
  Sex: Female

DRUGS (1)
  1. LENALIDOMIDE [Suspect]
     Active Substance: LENALIDOMIDE
     Indication: Plasma cell myeloma
     Dosage: TAKE 1 CAPSULE BY MOUTH ONCE DAILY IN THE MORNING FOR 14 DAYS ON THEN 7 DAYS OFF
     Route: 048

REACTIONS (3)
  - Pneumonia [Recovering/Resolving]
  - White blood cell count decreased [Recovering/Resolving]
  - Off label use [Unknown]
